FAERS Safety Report 7306610-6 (Version None)
Quarter: 2011Q1

REPORT INFORMATION
  Report Type: 
  Country: None (occurrence: None)
  Receive Date: 20110222
  Receipt Date: 20110216
  Transmission Date: 20110831
  Serious: No
  Sender: FDA-Public Use
  Company Number: US-B.I. PHARMACEUTICALS,INC./RIDGEFIELD-2011-BP-03403BP

PATIENT
  Sex: Female

DRUGS (8)
  1. PRAVACHOL [Concomitant]
     Indication: BLOOD CHOLESTEROL INCREASED
  2. EXELON [Concomitant]
     Indication: AMNESIA
  3. NAMENDA [Concomitant]
     Indication: AMNESIA
     Dosage: 10 MG
  4. NORVASC [Concomitant]
     Indication: HYPERTENSION
  5. PRADAXA [Suspect]
     Indication: ATRIAL FIBRILLATION
     Dosage: 300 MG
     Route: 048
     Dates: start: 20110202
  6. PRILOSEC [Concomitant]
     Indication: ABDOMINAL DISCOMFORT
  7. SYNTHROID [Concomitant]
     Indication: HYPOTHYROIDISM
  8. AMIODARONE HCL [Concomitant]
     Indication: ATRIAL FIBRILLATION
     Dosage: 200 MG

REACTIONS (1)
  - AGEUSIA [None]
